FAERS Safety Report 8270416 (Version 4)
Quarter: 2012Q4

REPORT INFORMATION
  Report Type: 
  Country: US (occurrence: US)
  Receive Date: 20111122
  Receipt Date: 20121107
  Transmission Date: 20130627
  Serious: Yes (Hospitalization, Other)
  Sender: FDA-Public Use
  Company Number: PHHY2011US44867

PATIENT
  Age: 36 Year
  Sex: Female

DRUGS (12)
  1. GILENYA [Suspect]
     Indication: MULTIPLE SCLEROSIS
     Dosage: 0.5 mg, QD
     Route: 048
     Dates: start: 20110504
  2. GILENYA [Suspect]
     Dosage: 0.5 mg, QD
     Route: 048
     Dates: start: 20110525, end: 20120308
  3. CALCIUM WITH VITAMIN D [Concomitant]
     Route: 048
  4. VITAMIN B12 [Concomitant]
     Dosage: 1000 ug, Daily
     Route: 048
  5. MAGNESIUM [Concomitant]
  6. FISH OIL [Concomitant]
     Dosage: 1200 mg, TID
     Route: 048
  7. ESTROGEN NOS [Concomitant]
  8. MULTIVITAMINS [Concomitant]
  9. BIOTIN [Concomitant]
  10. CELEXA [Concomitant]
     Dosage: 20 mg/day
  11. HYDROCHLOROTHIAZIDE [Concomitant]
     Dosage: UNK UKN, UNK
  12. ANTIBIOTICS [Concomitant]

REACTIONS (21)
  - Hypertension [Recovered/Resolved]
  - Headache [Recovered/Resolved]
  - Labile blood pressure [Recovered/Resolved]
  - Abnormal behaviour [Recovered/Resolved]
  - Somnolence [Recovered/Resolved]
  - Heart rate increased [Recovered/Resolved]
  - Cough [Not Recovered/Not Resolved]
  - Malaise [Recovered/Resolved]
  - CD4 lymphocytes decreased [Not Recovered/Not Resolved]
  - Productive cough [Not Recovered/Not Resolved]
  - Nasopharyngitis [Unknown]
  - Leukopenia [Unknown]
  - Bradycardia [None]
  - Hypertensive encephalopathy [None]
  - Hypotension [None]
  - Malaise [None]
  - Dizziness [None]
  - Mental disorder [None]
  - Hypokinesia [None]
  - Fatigue [None]
  - Weight decreased [None]
